FAERS Safety Report 4907771-6 (Version None)
Quarter: 2006Q1

REPORT INFORMATION
  Report Type: 
  Country: None (occurrence: None)
  Receive Date: 20060208
  Receipt Date: 20060208
  Transmission Date: 20060701
  Serious: Yes (Hospitalization)
  Sender: FDA-Public Use
  Company Number: None

PATIENT
  Age: 70 Year
  Sex: Male

DRUGS (10)
  1. OXYCODONE [Suspect]
     Indication: PAIN
     Dosage: 20 MG Q 8 H
     Dates: start: 20031001
  2. FESO4 [Concomitant]
  3. METOPROLOL [Concomitant]
  4. SENOKOT [Concomitant]
  5. SIMVASTATIN [Concomitant]
  6. AMIODRONE [Concomitant]
  7. LISINOPRIL [Concomitant]
  8. LORATADINE [Concomitant]
  9. PLAVIX [Concomitant]
  10. PANTOPRAZOLE [Concomitant]

REACTIONS (1)
  - MENTAL STATUS CHANGES [None]
